FAERS Safety Report 7610157 (Version 6)
Quarter: 2013Q3

REPORT INFORMATION
  Report Type: Report from Study
  Country: AR (occurrence: AR)
  Receive Date: 20100928
  Receipt Date: 20130905
  Transmission Date: 20140515
  Serious: Yes (Hospitalization, Other)
  Sender: FDA-Public Use
  Company Number: BR-SHIRE-SPV1-2010-01628

PATIENT
  Age: 4 Year
  Sex: Male
  Weight: 28.4 kg

DRUGS (12)
  1. IDURSULFASE [Suspect]
     Indication: MUCOPOLYSACCHARIDOSIS II
     Dosage: 0.5 MG/KG, 1X/WEEK
     Route: 041
     Dates: start: 20071212
  2. HYDROXIZINE [Concomitant]
     Indication: PREMEDICATION
     Dosage: UNK, UNKNOWN
     Route: 065
     Dates: start: 20100511, end: 20100511
  3. PREDNISONE [Concomitant]
     Indication: PREMEDICATION
     Dosage: 1 MG/KG ONE HOUR BEFORE ELAPRASE INFUSION, OTHER
     Route: 065
  4. PARACETAMOL [Concomitant]
     Indication: PREMEDICATION
     Dosage: UNK, UNKNOWN
     Route: 065
     Dates: start: 20080105
  5. OTHER RESPIRATORY SYSTEM PRODUCTS [Concomitant]
     Indication: BRONCHIAL OBSTRUCTION
     Dosage: UNK, 3X/DAY:TID
     Route: 065
  6. SALBUTAMOL [Concomitant]
     Indication: NEONATAL RESPIRATORY DISTRESS SYNDROME
     Dosage: UNK, UNKNOWN
     Route: 065
     Dates: start: 20060921
  7. DELTASONE                          /00016001/ [Concomitant]
     Indication: PREMEDICATION
     Dosage: UNK, UNKNOWN
     Route: 065
     Dates: start: 20080105
  8. ATARAXONE                          /00058401/ [Concomitant]
     Indication: PREMEDICATION
     Dosage: UNK, UNKNOWN
     Route: 065
     Dates: start: 20080105
  9. ATENOLOL [Concomitant]
     Indication: PRODUCT USED FOR UNKNOWN INDICATION
     Dosage: 25 MG, 1X/DAY:QD
     Route: 048
     Dates: start: 20101022
  10. NASONEX [Concomitant]
     Indication: PRODUCT USED FOR UNKNOWN INDICATION
     Dosage: UNK, UNKNOWN
     Route: 065
  11. SINGULAIR [Concomitant]
     Indication: PRODUCT USED FOR UNKNOWN INDICATION
     Dosage: UNK, UNKNOWN
     Route: 065
  12. FLIXOTIDE [Concomitant]
     Indication: PRODUCT USED FOR UNKNOWN INDICATION
     Dosage: 125 MCG, 2X/DAY:BID
     Route: 048

REACTIONS (2)
  - Supraventricular tachycardia [Recovered/Resolved]
  - Infusion related reaction [Recovered/Resolved]
